FAERS Safety Report 5819506-3 (Version None)
Quarter: 2008Q3

REPORT INFORMATION
  Report Type: 
  Country: None (occurrence: None)
  Receive Date: 20080723
  Receipt Date: 20080715
  Transmission Date: 20090109
  Serious: Yes (Hospitalization)
  Sender: FDA-Public Use
  Company Number: US-ASTRAZENECA-2007UW22370

PATIENT
  Sex: Male

DRUGS (7)
  1. SEROQUEL [Suspect]
     Route: 048
     Dates: start: 20070921, end: 20070921
  2. SEROQUEL [Suspect]
     Route: 048
     Dates: start: 20061001, end: 20070901
  3. HYDROCHLOROTHIAZIDE [Concomitant]
  4. MICROGEL [Concomitant]
  5. MICRO-K [Concomitant]
  6. CLONIDINE [Concomitant]
  7. LOPRESSOR [Concomitant]

REACTIONS (2)
  - INTENTIONAL OVERDOSE [None]
  - SUICIDE ATTEMPT [None]
